FAERS Safety Report 5355158-7 (Version None)
Quarter: 2007Q2

REPORT INFORMATION
  Report Type: 
  Country: None (occurrence: None)
  Receive Date: 20070611
  Receipt Date: 20070529
  Transmission Date: 20071010
  Serious: Yes (Hospitalization)
  Sender: FDA-Public Use
  Company Number: 16683

PATIENT
  Age: 67 Year
  Sex: Female

DRUGS (5)
  1. PACLITAXEL [Suspect]
     Indication: CHEMOTHERAPY
  2. PEGFILGRASTIM [Suspect]
     Indication: DRUG USE FOR UNKNOWN INDICATION
     Dosage: 6 MG FREQ UNK SC
     Route: 058
  3. DEXAMETHASONE 0.5MG TAB [Suspect]
     Indication: PREMEDICATION
     Dosage: 20 MG FREQ UNK IV
     Route: 042
  4. DEXAMETHASONE 0.5MG TAB [Suspect]
     Indication: PREMEDICATION
     Dosage: 20 MG FREQ UNK PO
     Route: 048
  5. DEXAMETHASONE 0.5MG TAB [Suspect]
     Indication: PREMEDICATION
     Dosage: 10 MG FREQ UNK PO
     Route: 048

REACTIONS (2)
  - DYSPNOEA [None]
  - LEUKOCYTOSIS [None]
